FAERS Safety Report 23860427 (Version 1)
Quarter: 2024Q2

REPORT INFORMATION
  Report Type: Report from Study
  Country: US (occurrence: US)
  Receive Date: 20240516
  Receipt Date: 20240516
  Transmission Date: 20240716
  Serious: Yes (Other)
  Sender: FDA-Public Use
  Company Number: US-ABBVIE-5759691

PATIENT
  Sex: Male

DRUGS (7)
  1. RINVOQ [Suspect]
     Active Substance: UPADACITINIB
     Indication: Crohn^s disease
     Dosage: TAKE 1 TABLET (45MG) BY MOUTH DAILY FOR 84 DAYS
     Route: 048
     Dates: start: 202403
  2. POMEGRANATE [Concomitant]
     Active Substance: POMEGRANATE
     Indication: Product used for unknown indication
  3. EPIGALLOCATECHIN GALLATE [Concomitant]
     Active Substance: EPIGALLOCATECHIN GALLATE
     Indication: Product used for unknown indication
  4. HERBALS\VITIS VINIFERA SEED [Concomitant]
     Active Substance: HERBALS\VITIS VINIFERA SEED
     Indication: Product used for unknown indication
  5. VITAMIN D [Concomitant]
     Active Substance: VITAMIN D NOS
     Indication: Product used for unknown indication
  6. METOCLOPRAMIDE [Concomitant]
     Active Substance: METOCLOPRAMIDE
     Indication: Product used for unknown indication
  7. GABAPENTIN [Concomitant]
     Active Substance: GABAPENTIN
     Indication: Product used for unknown indication

REACTIONS (5)
  - Stoma creation [Unknown]
  - Dyspepsia [Unknown]
  - Feeling abnormal [Unknown]
  - Crohn^s disease [Unknown]
  - Drug ineffective [Unknown]

NARRATIVE: CASE EVENT DATE: 20240101
